FAERS Safety Report 7604786-4 (Version None)
Quarter: 2011Q3

REPORT INFORMATION
  Report Type: 
  Country: None (occurrence: None)
  Receive Date: 20110712
  Receipt Date: 20110711
  Transmission Date: 20111222
  Serious: Yes (Other)
  Sender: FDA-Public Use
  Company Number: PHHO2009DE13556

PATIENT
  Sex: Male
  Weight: 80 kg

DRUGS (4)
  1. BROMAZEPAM [Concomitant]
     Indication: SLEEP DISORDER
  2. PREGABALIN [Concomitant]
     Indication: NEURALGIA
  3. GILENYA [Suspect]
     Indication: MULTIPLE SCLEROSIS
     Dosage: DOSE BLINDED
     Route: 048
     Dates: start: 20081031, end: 20091029
  4. SIMVASTATIN [Concomitant]
     Indication: HYPERCHOLESTEROLAEMIA

REACTIONS (2)
  - LYMPHADENOPATHY [None]
  - MALIGNANT MELANOMA [None]
